FAERS Safety Report 19226070 (Version 1)
Quarter: 2021Q2

REPORT INFORMATION
  Report Type: Spontaneous
  Country: FR (occurrence: FR)
  Receive Date: 20210506
  Receipt Date: 20210506
  Transmission Date: 20210717
  Serious: Yes (Hospitalization)
  Sender: FDA-Public Use
  Company Number: FR-ALSI-2021000130

PATIENT
  Age: 80 Year
  Sex: Male

DRUGS (1)
  1. OXYGEN. [Suspect]
     Active Substance: OXYGEN
     Indication: OVERLAP SYNDROME
     Route: 055

REACTIONS (2)
  - Intentional product misuse [Recovered/Resolved]
  - Thermal burn [Recovering/Resolving]

NARRATIVE: CASE EVENT DATE: 20210426
